FAERS Safety Report 9614560 (Version 1)
Quarter: 2013Q4

REPORT INFORMATION
  Report Type: Spontaneous
  Country: AU (occurrence: AU)
  Receive Date: 20131011
  Receipt Date: 20131011
  Transmission Date: 20140711
  Serious: Yes (Other)
  Sender: FDA-Public Use
  Company Number: PHHY2013AU114070

PATIENT
  Sex: Male

DRUGS (4)
  1. STALEVO [Suspect]
  2. BLACKMORES FISH OIL [Concomitant]
  3. CHLORELLA [Concomitant]
  4. ALPRAZOLAM [Concomitant]

REACTIONS (8)
  - Panic attack [Unknown]
  - Thinking abnormal [Unknown]
  - Delusion [Unknown]
  - Disturbance in attention [Unknown]
  - Suicidal ideation [Unknown]
  - Anxiety [Unknown]
  - Dyspnoea [Unknown]
  - Insomnia [Unknown]
